FAERS Safety Report 4346374-1 (Version None)
Quarter: 2004Q2

REPORT INFORMATION
  Report Type: 
  Country: None (occurrence: None)
  Receive Date: 20040426
  Receipt Date: 20030404
  Transmission Date: 20050107
  Serious: No
  Sender: FDA-Public Use
  Company Number: US-GLAXOSMITHKLINE-A0403515A

PATIENT
  Age: 35 Year
  Sex: Female

DRUGS (2)
  1. ZOFRAN [Suspect]
     Route: 048
     Dates: start: 20020501, end: 20021101
  2. PHENERGAN [Concomitant]
     Route: 048

REACTIONS (4)
  - FEELING ABNORMAL [None]
  - NAUSEA [None]
  - NORMAL DELIVERY [None]
  - UNEXPECTED THERAPEUTIC DRUG EFFECT [None]
